FAERS Safety Report 4369478-6 (Version None)
Quarter: 2004Q2

REPORT INFORMATION
  Report Type: 
  Country: None (occurrence: None)
  Receive Date: 20040527
  Receipt Date: 20040503
  Transmission Date: 20050107
  Serious: Yes (Death)
  Sender: FDA-Public Use
  Company Number: MK200405-0306-1

PATIENT
  Age: 16 Year

DRUGS (1)
  1. HYDROMORPHONE HCL [Suspect]

REACTIONS (4)
  - APNOEA [None]
  - COMA [None]
  - HYPOTENSION [None]
  - MEDICATION ERROR [None]
